FAERS Safety Report 23254131 (Version 1)
Quarter: 2023Q4

REPORT INFORMATION
  Report Type: Spontaneous
  Country: GB (occurrence: GB)
  Receive Date: 20231202
  Receipt Date: 20231202
  Transmission Date: 20240109
  Serious: Yes (Life-Threatening, Other)
  Sender: FDA-Public Use
  Company Number: GB-MHRA-ADR 23328333

PATIENT
  Age: 71 Year
  Sex: Male
  Weight: 95 kg

DRUGS (7)
  1. DOXAZOSIN MESYLATE [Suspect]
     Active Substance: DOXAZOSIN MESYLATE
     Indication: Essential hypertension
     Dosage: 4 MG
     Route: 065
     Dates: start: 20160101, end: 20160106
  2. RAMIPRIL [Concomitant]
     Active Substance: RAMIPRIL
     Indication: Product used for unknown indication
     Dosage: 10 MG
     Route: 065
     Dates: start: 200606
  3. RAMIPRIL [Concomitant]
     Active Substance: RAMIPRIL
     Dosage: IN THE MORNING
     Route: 065
     Dates: start: 20060607
  4. FLUVASTATIN [Concomitant]
     Active Substance: FLUVASTATIN SODIUM
     Indication: Product used for unknown indication
     Dosage: 80 MG
     Route: 065
     Dates: start: 200602
  5. FLUVASTATIN [Concomitant]
     Active Substance: FLUVASTATIN SODIUM
     Dosage: AT NIGHT.
     Route: 065
     Dates: start: 20060202
  6. LATANOPROST [Concomitant]
     Active Substance: LATANOPROST
     Indication: Product used for unknown indication
     Dosage: 1 GTT, ONCE A DAY
     Route: 065
     Dates: start: 20151104
  7. CARBOXYMETHYLCELLULOSE SODIUM\GLYCERIN [Concomitant]
     Active Substance: CARBOXYMETHYLCELLULOSE SODIUM\GLYCERIN
     Indication: Product used for unknown indication
     Dosage: 1 GTT, FOUR TIMES/DAY
     Route: 065
     Dates: start: 20140205

REACTIONS (2)
  - Hypotension [Recovered/Resolved]
  - Product formulation issue [Unknown]

NARRATIVE: CASE EVENT DATE: 20160106
